FAERS Safety Report 4896319-0 (Version None)
Quarter: 2006Q1

REPORT INFORMATION
  Report Type: 
  Country: None (occurrence: None)
  Receive Date: 20060126
  Receipt Date: 20060118
  Transmission Date: 20060701
  Serious: Yes (Hospitalization)
  Sender: FDA-Public Use
  Company Number: 2005BI021965

PATIENT
  Age: 41 Year
  Sex: Male
  Weight: 77.1115 kg

DRUGS (3)
  1. AVONEX [Suspect]
     Indication: MULTIPLE SCLEROSIS
     Dosage: 30 UG, QW; IM
     Route: 030
     Dates: start: 20000101
  2. AVONEX [Suspect]
     Indication: MULTIPLE SCLEROSIS
     Dosage: 30 UG, QW; IM
     Route: 030
     Dates: start: 20030801, end: 20051120
  3. WELLBUTRIN [Concomitant]

REACTIONS (11)
  - ASTHENIA [None]
  - ATROPHY [None]
  - COUGH [None]
  - FALL [None]
  - INJECTION SITE CELLULITIS [None]
  - INJECTION SITE PAIN [None]
  - MOVEMENT DISORDER [None]
  - MUSCLE SPASTICITY [None]
  - NERVE INJURY [None]
  - POOR QUALITY DRUG ADMINISTERED [None]
  - SOMNOLENCE [None]
